FAERS Safety Report 6407335-1 (Version None)
Quarter: 2009Q4

REPORT INFORMATION
  Report Type: 
  Country: None (occurrence: None)
  Receive Date: 20091020
  Receipt Date: 20091012
  Transmission Date: 20100525
  Serious: Yes (Other)
  Sender: FDA-Public Use
  Company Number: D0063198A

PATIENT
  Age: 59 Year
  Sex: Male
  Weight: 83 kg

DRUGS (7)
  1. LAMOTRIGINE [Suspect]
     Indication: EPILEPSY
     Dosage: 50MG TWICE PER DAY
     Route: 048
     Dates: start: 20090601, end: 20090930
  2. KEPPRA [Suspect]
     Indication: EPILEPSY
     Dosage: 500MG TWICE PER DAY
     Route: 065
  3. PANTOPRAZOLE SODIUM [Suspect]
     Dosage: 40MG PER DAY
     Route: 065
  4. ATEHEXAL [Suspect]
     Indication: HYPERTENSION
     Dosage: 25MG TWICE PER DAY
     Route: 065
  5. CARMEN [Suspect]
     Indication: HYPERTENSION
     Dosage: 10MG PER DAY
     Route: 065
  6. RAMIPRIL [Suspect]
     Indication: HYPERTENSION
     Dosage: 5MG PER DAY
     Route: 065
  7. SIMVASTATIN [Suspect]
     Dosage: 20MG PER DAY
     Route: 065

REACTIONS (8)
  - ASTHENIA [None]
  - DRUG INTERACTION [None]
  - FATIGUE [None]
  - GRAND MAL CONVULSION [None]
  - HYPERKALAEMIA [None]
  - HYPONATRAEMIA [None]
  - POST PROCEDURAL HAEMORRHAGE [None]
  - TONGUE NEOPLASM MALIGNANT STAGE UNSPECIFIED [None]
